FAERS Safety Report 5888866-X (Version None)
Quarter: 2008Q3

REPORT INFORMATION
  Report Type: 
  Country: None (occurrence: None)
  Receive Date: 20080919
  Receipt Date: 20080911
  Transmission Date: 20090109
  Serious: Yes (Other)
  Sender: FDA-Public Use
  Company Number: PHHY2008FR21195

PATIENT
  Sex: Male

DRUGS (2)
  1. ZOMETA [Suspect]
     Indication: OSTEOPOROSIS
     Dosage: 4 MG, ONE INJECTION IN 2003 AND ONE INJECTION IN 2004
     Route: 042
     Dates: start: 20030101
  2. ZOMETA [Suspect]
     Indication: OFF LABEL USE

REACTIONS (1)
  - OSTEONECROSIS [None]
